FAERS Safety Report 14927785 (Version 1)
Quarter: 2018Q2

REPORT INFORMATION
  Report Type: Report from Study
  Country: CA (occurrence: CA)
  Receive Date: 20180523
  Receipt Date: 20180523
  Transmission Date: 20180711
  Serious: Yes (Other)
  Sender: FDA-Public Use
  Company Number: CA-ROCHE-1975896

PATIENT
  Age: 48 Year
  Sex: Male

DRUGS (4)
  1. ALECENSARO [Suspect]
     Active Substance: ALECTINIB
     Dosage: THERAPY RESTARTED AT AN UNKNOWN DOSE
     Route: 048
     Dates: start: 20171224
  2. FRAGMIN [Concomitant]
     Active Substance: DALTEPARIN SODIUM
  3. ALECENSARO [Suspect]
     Active Substance: ALECTINIB
     Indication: NON-SMALL CELL LUNG CANCER
     Dosage: THERAPY INTERRUPTED FOR RADIATION
     Route: 048
     Dates: start: 20170523, end: 201712
  4. NEXIUM [Concomitant]
     Active Substance: ESOMEPRAZOLE MAGNESIUM

REACTIONS (13)
  - Hyperacusis [Not Recovered/Not Resolved]
  - Blood testosterone decreased [Unknown]
  - Cerebral radiation injury [Recovering/Resolving]
  - Increased appetite [Unknown]
  - Nausea [Unknown]
  - Headache [Not Recovered/Not Resolved]
  - Peripheral swelling [Not Recovered/Not Resolved]
  - Skin hypertrophy [Not Recovered/Not Resolved]
  - Skin swelling [Not Recovered/Not Resolved]
  - Nail disorder [Not Recovered/Not Resolved]
  - Pruritus [Not Recovered/Not Resolved]
  - Fatigue [Unknown]
  - Dizziness [Unknown]

NARRATIVE: CASE EVENT DATE: 20170607
